FAERS Safety Report 15800986 (Version 1)
Quarter: 2019Q1

REPORT INFORMATION
  Report Type: Spontaneous
  Country: US (occurrence: US)
  Receive Date: 20190109
  Receipt Date: 20190109
  Transmission Date: 20190417
  Serious: No
  Sender: FDA-Public Use
  Company Number: US-ZYDUS-029733

PATIENT
  Sex: Female

DRUGS (1)
  1. ELETRIPTAN/ELETRIPTAN HYDROBROMIDE [Suspect]
     Active Substance: ELETRIPTAN\ELETRIPTAN HYDROBROMIDE
     Indication: MIGRAINE
     Route: 048

REACTIONS (1)
  - Drug ineffective [Unknown]
